FAERS Safety Report 5781665-9 (Version None)
Quarter: 2008Q2

REPORT INFORMATION
  Report Type: 
  Country: None (occurrence: None)
  Receive Date: 20080623
  Receipt Date: 20070530
  Transmission Date: 20081010
  Serious: No
  Sender: FDA-Public Use
  Company Number: US-ASTRAZENECA-2007UW13258

PATIENT
  Age: 79 Year
  Sex: Female
  Weight: 61.2 kg

DRUGS (10)
  1. RHINOCORT [Suspect]
     Indication: HYPERSENSITIVITY
     Dosage: ONE SPRAY EACH NOSTRIL DAILY
     Route: 045
     Dates: start: 20070529
  2. ANTIVERT [Concomitant]
  3. COZAAR [Concomitant]
  4. COREG [Concomitant]
  5. CORDARONE [Concomitant]
  6. SYNTHROID [Concomitant]
  7. NEXIUM [Concomitant]
     Route: 048
  8. ASPIRIN [Concomitant]
  9. VITAMINS [Concomitant]
  10. INSULIN [Concomitant]

REACTIONS (1)
  - DIZZINESS [None]
